FAERS Safety Report 12611054 (Version 10)
Quarter: 2017Q4

REPORT INFORMATION
  Report Type: Spontaneous
  Country: US (occurrence: US)
  Receive Date: 20160801
  Receipt Date: 20171018
  Transmission Date: 20180320
  Serious: Yes (Death, Life-Threatening, Congenital Anomaly, Other)
  Sender: FDA-Public Use
  Company Number: PHEH2016US018809

PATIENT
  Sex: Female

DRUGS (4)
  1. ZOFRAN [Suspect]
     Active Substance: ONDANSETRON HYDROCHLORIDE
     Indication: FOETAL EXPOSURE DURING PREGNANCY
     Dosage: MOTHER^S DOSE: 4 MG, UNK
     Route: 064
  2. ZOFRAN ODT [Suspect]
     Active Substance: ONDANSETRON HYDROCHLORIDE
     Indication: FOETAL EXPOSURE DURING PREGNANCY
     Dosage: MOTHER DOSE: 04 MG, Q6H
     Route: 064
  3. ONDANSETRON HYDROCHLORIDE. [Suspect]
     Active Substance: ONDANSETRON HYDROCHLORIDE
     Indication: FOETAL EXPOSURE DURING PREGNANCY
     Route: 064
  4. ONDANSETRON [Suspect]
     Active Substance: ONDANSETRON
     Indication: FOETAL EXPOSURE DURING PREGNANCY
     Dosage: MOTHER^S DOSE: 4 MG, PRN
     Route: 064

REACTIONS (16)
  - Congenital hydrocephalus [Unknown]
  - Congenital hand malformation [Unknown]
  - Congenital scoliosis [Unknown]
  - Encephalocele [Unknown]
  - Oedema peripheral [Unknown]
  - Foetal exposure during pregnancy [Unknown]
  - Kidney malrotation [Unknown]
  - Foetal malformation [Unknown]
  - Single umbilical artery [Unknown]
  - Congenital musculoskeletal anomaly [Unknown]
  - Gastroschisis [Unknown]
  - Cleft lip and palate [Unknown]
  - Congenital anomaly [Fatal]
  - Craniofacial deformity [Unknown]
  - Limb reduction defect [Unknown]
  - Cerebral ventricle dilatation [Unknown]
